FAERS Safety Report 5634479-4 (Version None)
Quarter: 2008Q1

REPORT INFORMATION
  Report Type: 
  Country: None (occurrence: None)
  Receive Date: 20080220
  Receipt Date: 20080220
  Transmission Date: 20080703
  Serious: Yes (Other)
  Sender: FDA-Public Use
  Company Number: None

PATIENT
  Age: 68 Year
  Sex: Male
  Weight: 101.6057 kg

DRUGS (1)
  1. CHANTIX [Suspect]
     Indication: TOBACCO ABUSE
     Dosage: 0.5MG ONCE DAILY
     Dates: start: 20071218, end: 20071222

REACTIONS (6)
  - BACK PAIN [None]
  - INDIFFERENCE [None]
  - NERVOUS SYSTEM DISORDER [None]
  - PARAESTHESIA [None]
  - PRURITUS [None]
  - SUICIDAL IDEATION [None]
